FAERS Safety Report 8624386-7 (Version None)
Quarter: 2012Q3

REPORT INFORMATION
  Report Type: 
  Country: None (occurrence: None)
  Receive Date: 20120827
  Receipt Date: 20120822
  Transmission Date: 20120928
  Serious: Yes (Death, Other)
  Sender: FDA-Public Use
  Company Number: PT-PFIZER INC-2012177536

PATIENT
  Age: 37 Year
  Sex: Female
  Weight: 54 kg

DRUGS (1)
  1. CRIZOTINIB [Suspect]
     Indication: LUNG CARCINOMA CELL TYPE UNSPECIFIED STAGE IV
     Dosage: 250 MG, 2X/DAY
     Route: 048
     Dates: start: 20110401, end: 20120328

REACTIONS (3)
  - LUNG CARCINOMA CELL TYPE UNSPECIFIED STAGE IV [None]
  - DISEASE PROGRESSION [None]
  - URINARY TRACT INFECTION [None]
